FAERS Safety Report 6177134-7 (Version None)
Quarter: 2009Q2

REPORT INFORMATION
  Report Type: 
  Country: None (occurrence: None)
  Receive Date: 20090504
  Receipt Date: 20090429
  Transmission Date: 20091009
  Serious: Yes (Other)
  Sender: FDA-Public Use
  Company Number: US-BRISTOL-MYERS SQUIBB COMPANY-14605810

PATIENT
  Age: 73 Year
  Sex: Female

DRUGS (1)
  1. IXEMPRA KIT [Suspect]
     Dosage: 5 DF=5 DOSES, 3 FULL DOSES + 2 DOSES REDUCED TO 20%

REACTIONS (1)
  - HEPATIC CIRRHOSIS [None]
